FAERS Safety Report 23352956 (Version 1)
Quarter: 2023Q4

REPORT INFORMATION
  Report Type: Spontaneous
  Country: IT (occurrence: IT)
  Receive Date: 20231230
  Receipt Date: 20231230
  Transmission Date: 20240109
  Serious: Yes (Hospitalization, Other)
  Sender: FDA-Public Use
  Company Number: IT-VKT-000417

PATIENT
  Age: 15 Year
  Sex: Female

DRUGS (14)
  1. LEVETIRACETAM [Suspect]
     Active Substance: LEVETIRACETAM
     Indication: Seizure
     Route: 065
  2. LEVETIRACETAM [Suspect]
     Active Substance: LEVETIRACETAM
     Indication: Seizure
     Route: 065
  3. LORAZEPAM [Suspect]
     Active Substance: LORAZEPAM
     Indication: Seizure
     Route: 048
  4. PHENYTOIN [Suspect]
     Active Substance: PHENYTOIN
     Indication: Seizure
     Route: 042
  5. TOPIRAMATE [Suspect]
     Active Substance: TOPIRAMATE
     Indication: Seizure
     Route: 048
  6. RUFINAMIDE [Suspect]
     Active Substance: RUFINAMIDE
     Indication: Seizure
     Route: 065
  7. PERAMPANEL [Suspect]
     Active Substance: PERAMPANEL
     Indication: Seizure
     Route: 065
  8. CLOBAZAM [Suspect]
     Active Substance: CLOBAZAM
     Indication: Seizure
     Route: 065
  9. NITRAZEPAM [Suspect]
     Active Substance: NITRAZEPAM
     Indication: Seizure
     Route: 065
  10. ZONISAMIDE [Suspect]
     Active Substance: ZONISAMIDE
     Indication: Seizure
     Route: 065
  11. CANNABIDIOL [Suspect]
     Active Substance: CANNABIDIOL
     Indication: Seizure
     Route: 065
  12. VALPROIC ACID [Concomitant]
     Active Substance: VALPROIC ACID
     Indication: Seizure
     Route: 065
  13. DIAZEPAM [Concomitant]
     Active Substance: DIAZEPAM
     Indication: Seizure
     Route: 054
  14. MIDAZOLAM [Suspect]
     Active Substance: MIDAZOLAM
     Indication: Seizure
     Route: 065

REACTIONS (16)
  - Change in seizure presentation [Unknown]
  - Seizure [Unknown]
  - PCDH19 gene-related epilepsy [Unknown]
  - Cornelia de Lange syndrome [Unknown]
  - CSWS syndrome [Unknown]
  - Epileptic encephalopathy [Unknown]
  - Intellectual disability [Unknown]
  - Disease recurrence [Unknown]
  - Partial seizures with secondary generalisation [Unknown]
  - Therapy non-responder [Unknown]
  - Multiple-drug resistance [Unknown]
  - Gait disturbance [Unknown]
  - Febrile convulsion [Unknown]
  - Rett syndrome [Unknown]
  - Gene mutation [Unknown]
  - Neurodevelopmental delay [Unknown]
